FAERS Safety Report 15976703 (Version 1)
Quarter: 2019Q1

REPORT INFORMATION
  Report Type: Report from Study
  Country: US (occurrence: US)
  Receive Date: 20190218
  Receipt Date: 20190218
  Transmission Date: 20190418
  Serious: Yes (Hospitalization)
  Sender: FDA-Public Use
  Company Number: US-ASTELLAS-2018US046978

PATIENT
  Sex: Male

DRUGS (1)
  1. ENZALUTAMIDE [Suspect]
     Active Substance: ENZALUTAMIDE
     Indication: BONE CANCER
     Dates: start: 201810, end: 20190109

REACTIONS (4)
  - Product use in unapproved indication [Unknown]
  - Malaise [Unknown]
  - Nausea [Recovering/Resolving]
  - Diarrhoea [Not Recovered/Not Resolved]
